FAERS Safety Report 6095017-8 (Version None)
Quarter: 2009Q1

REPORT INFORMATION
  Report Type: 
  Country: None (occurrence: None)
  Receive Date: 20090227
  Receipt Date: 20080128
  Transmission Date: 20090719
  Serious: No
  Sender: FDA-Public Use
  Company Number: A0430677A

PATIENT
  Age: 50 Year
  Sex: Male

DRUGS (2)
  1. LAMICTAL [Suspect]
     Indication: BIPOLAR II DISORDER
     Dosage: 125MG PER DAY
     Route: 048
     Dates: start: 20031013
  2. EFFEXOR [Suspect]
     Indication: BIPOLAR II DISORDER
     Dosage: 75MG PER DAY
     Route: 048

REACTIONS (7)
  - ADVERSE DRUG REACTION [None]
  - AMNESIA [None]
  - DRUG INEFFECTIVE [None]
  - HEADACHE [None]
  - INSOMNIA [None]
  - NAUSEA [None]
  - TINNITUS [None]
